FAERS Safety Report 5316067-2 (Version None)
Quarter: 2007Q2

REPORT INFORMATION
  Report Type: 
  Country: None (occurrence: None)
  Receive Date: 20070503
  Receipt Date: 20070424
  Transmission Date: 20071010
  Serious: Yes (Other)
  Sender: FDA-Public Use
  Company Number: GB-PFIZER INC-2006099784

PATIENT
  Age: 78 Year
  Sex: Male
  Weight: 77 kg

DRUGS (6)
  1. SPIRONOLACTONE [Suspect]
     Indication: HYPOKALAEMIA
     Route: 048
     Dates: start: 20060608, end: 20060611
  2. AMLODIPINE [Concomitant]
     Dosage: TEXT:UNKNOWN
     Route: 048
  3. BENDROFLUMETHIAZIDE [Concomitant]
     Dosage: TEXT:UNKNOWN
     Route: 048
  4. CHONDROITIN [Concomitant]
     Indication: OSTEOARTHRITIS
     Dosage: TEXT:UNKNOWN
     Route: 048
  5. GLUCOSAMINE [Concomitant]
     Indication: OSTEOARTHRITIS
     Dosage: TEXT:UNKNOWN
     Route: 048
     Dates: start: 20051005
  6. LISINOPRIL [Concomitant]
     Indication: HYPERTENSION
     Dosage: TEXT:UNKNOWN
     Route: 048

REACTIONS (3)
  - COUGH [None]
  - DYSPNOEA EXERTIONAL [None]
  - HAEMOPTYSIS [None]
